FAERS Safety Report 5033345-5 (Version None)
Quarter: 2006Q2

REPORT INFORMATION
  Report Type: 
  Country: None (occurrence: None)
  Receive Date: 20060620
  Receipt Date: 20060601
  Transmission Date: 20061013
  Serious: Yes (Other)
  Sender: FDA-Public Use
  Company Number: GB200606000481

PATIENT
  Age: 23 Year
  Sex: Male

DRUGS (5)
  1. ATOMOXETINE HYDROCHLORIDE (ATOMOXETINE HYDROCHLORIDE)CAPSULE [Suspect]
     Indication: ATTENTION DEFICIT/HYPERACTIVITY DISORDER
     Dosage: 10 MG, 2/D,
     Dates: start: 20060501
  2. MIRTAZAPINE (MITAZAPINE) [Concomitant]
  3. LOFEPRAMINE (LOFEPRAMINE) [Concomitant]
  4. AMISULPRIDE (AMISULPRIDE) [Concomitant]
  5. CLONAZEPAM [Concomitant]

REACTIONS (5)
  - AGGRESSION [None]
  - CONDITION AGGRAVATED [None]
  - DIZZINESS [None]
  - INTERMITTENT EXPLOSIVE DISORDER [None]
  - SUICIDAL IDEATION [None]
